FAERS Safety Report 4850364-X (Version None)
Quarter: 2005Q4

REPORT INFORMATION
  Report Type: 
  Country: None (occurrence: None)
  Receive Date: 20051123
  Receipt Date: 20051004
  Transmission Date: 20060501
  Serious: No
  Sender: FDA-Public Use
  Company Number: 218321

PATIENT
  Age: 42 Year
  Sex: Male
  Weight: 72.6 kg

DRUGS (1)
  1. RAPTIVA [Suspect]
     Indication: PSORIASIS
     Dosage: 0.7 ML, 1/WEEK, SUBCUTANEOUS
     Route: 058

REACTIONS (4)
  - OEDEMA PERIPHERAL [None]
  - PSORIASIS [None]
  - PSORIATIC ARTHROPATHY [None]
  - WHITE BLOOD CELL COUNT INCREASED [None]
